FAERS Safety Report 8469392-0 (Version None)
Quarter: 2012Q2

REPORT INFORMATION
  Report Type: 
  Country: None (occurrence: None)
  Receive Date: 20120626
  Receipt Date: 20120621
  Transmission Date: 20120825
  Serious: Yes (Other)
  Sender: FDA-Public Use
  Company Number: US-PFIZER INC-2012149890

PATIENT

DRUGS (1)
  1. LYRICA [Suspect]
     Dosage: 300 MG, 3X/DAY

REACTIONS (1)
  - DRUG DEPENDENCE [None]
